FAERS Safety Report 5121511-X (Version None)
Quarter: 2006Q4

REPORT INFORMATION
  Report Type: 
  Country: None (occurrence: None)
  Receive Date: 20061006
  Receipt Date: 20061002
  Transmission Date: 20070319
  Serious: Yes (Hospitalization)
  Sender: FDA-Public Use
  Company Number: US-BRISTOL-MYERS SQUIBB COMPANY-13527650

PATIENT
  Age: 47 Year
  Sex: Male
  Weight: 95 kg

DRUGS (4)
  1. PROLIXIN [Suspect]
     Indication: SCHIZOPHRENIA
     Dosage: ONCE EVERY 14 DAYS.
     Route: 030
  2. ZYPREXA [Concomitant]
  3. COGENTIN [Concomitant]
  4. BENADRYL [Concomitant]

REACTIONS (3)
  - FATIGUE [None]
  - PARANOIA [None]
  - TREMOR [None]
